FAERS Safety Report 4498684-5 (Version None)
Quarter: 2004Q3

REPORT INFORMATION
  Report Type: 
  Country: None (occurrence: None)
  Receive Date: 20040927
  Receipt Date: 20040621
  Transmission Date: 20050211
  Serious: No
  Sender: FDA-Public Use
  Company Number: USA040670680

PATIENT
  Age: 36 Year
  Sex: Male
  Weight: 91 kg

DRUGS (2)
  1. STRATTERA [Suspect]
     Dosage: 40 MG/ 1 DAY
     Dates: start: 20040621
  2. XANAX (ALPRAZOLAM DUM) [Concomitant]

REACTIONS (3)
  - FEELING ABNORMAL [None]
  - FEELING OF RELAXATION [None]
  - SOMNOLENCE [None]
